FAERS Safety Report 20704069 (Version 1)
Quarter: 2022Q2

REPORT INFORMATION
  Report Type: Spontaneous
  Country: US (occurrence: US)
  Receive Date: 20220413
  Receipt Date: 20220413
  Transmission Date: 20220721
  Serious: No
  Sender: FDA-Public Use
  Company Number: US-MLMSERVICE-20220318-3444037-1

PATIENT
  Sex: Female

DRUGS (15)
  1. DOXYCYCLINE [Suspect]
     Active Substance: DOXYCYCLINE
     Indication: Product used for unknown indication
     Dosage: UNK
     Route: 065
  2. DULOXETINE HYDROCHLORIDE [Suspect]
     Active Substance: DULOXETINE HYDROCHLORIDE
     Indication: Depression
     Dosage: UNK
     Route: 065
  3. METHYLPHENIDATE [Suspect]
     Active Substance: METHYLPHENIDATE
     Indication: Depression
     Dosage: UNK
     Route: 065
  4. AZITHROMYCIN [Suspect]
     Active Substance: AZITHROMYCIN
     Indication: Lyme disease
     Dosage: UNK
     Route: 065
  5. AZITHROMYCIN [Suspect]
     Active Substance: AZITHROMYCIN
     Indication: Human ehrlichiosis
  6. AZITHROMYCIN [Suspect]
     Active Substance: AZITHROMYCIN
     Indication: Bartonellosis
  7. AZITHROMYCIN [Suspect]
     Active Substance: AZITHROMYCIN
     Indication: Babesiosis
  8. RIFAMPIN [Suspect]
     Active Substance: RIFAMPIN
     Indication: Lyme disease
     Dosage: UNK
     Route: 065
  9. RIFAMPIN [Suspect]
     Active Substance: RIFAMPIN
     Indication: Human ehrlichiosis
  10. RIFAMPIN [Suspect]
     Active Substance: RIFAMPIN
     Indication: Bartonellosis
  11. RIFAMPIN [Suspect]
     Active Substance: RIFAMPIN
     Indication: Babesiosis
  12. DAPSONE [Suspect]
     Active Substance: DAPSONE
     Indication: Lyme disease
     Dosage: UNK
     Route: 065
  13. DAPSONE [Suspect]
     Active Substance: DAPSONE
     Indication: Human ehrlichiosis
  14. DAPSONE [Suspect]
     Active Substance: DAPSONE
     Indication: Bartonellosis
  15. DAPSONE [Suspect]
     Active Substance: DAPSONE
     Indication: Babesiosis

REACTIONS (9)
  - Drug hypersensitivity [Unknown]
  - Urticaria [Unknown]
  - Eczema [Unknown]
  - Skin burning sensation [Unknown]
  - Condition aggravated [Unknown]
  - Fatigue [Unknown]
  - Drug ineffective [Unknown]
  - Off label use [Unknown]
  - Drug ineffective for unapproved indication [Unknown]
